FAERS Safety Report 9475715 (Version 1)
Quarter: 2013Q3

REPORT INFORMATION
  Report Type: Spontaneous
  Country: US (occurrence: None)
  Receive Date: 20130821
  Receipt Date: 20130821
  Transmission Date: 20140515
  Serious: Yes (Other)
  Sender: FDA-Public Use
  Company Number: AUR-APL-2013-06796

PATIENT
  Age: 63 Year
  Sex: Female
  Weight: 83.9 kg

DRUGS (4)
  1. ATENOLOL (ATENOLOL) [Suspect]
     Dates: start: 2013, end: 201308
  2. CHANTIX [Suspect]
     Dates: start: 201211, end: 201308
  3. EFFEXOR (VENLAFAXINE HYDROCHLORIDE) UNKNOWN [Suspect]
     Dosage: 35 MG 2 IN 1 D
  4. VENLAFAXINE (VENLAFAXINE) [Suspect]
     Dates: end: 20130806

REACTIONS (8)
  - Dizziness [None]
  - Hyperhidrosis [None]
  - Balance disorder [None]
  - Paraesthesia [None]
  - Urinary tract infection [None]
  - Body temperature increased [None]
  - Feeling abnormal [None]
  - Strabismus [None]
